FAERS Safety Report 20180315 (Version 5)
Quarter: 2022Q1

REPORT INFORMATION
  Report Type: Spontaneous
  Country: US (occurrence: US)
  Receive Date: 20211214
  Receipt Date: 20220203
  Transmission Date: 20220423
  Serious: Yes (Hospitalization)
  Sender: FDA-Public Use
  Company Number: US-Global Blood Therapeutics Inc-US-GBT-21-03442

PATIENT
  Age: 24 Year
  Sex: Male

DRUGS (24)
  1. OXBRYTA [Suspect]
     Active Substance: VOXELOTOR
     Indication: Sickle cell disease
     Route: 048
     Dates: start: 20201221
  2. OXBRYTA [Suspect]
     Active Substance: VOXELOTOR
     Route: 048
  3. TYLENOL [Concomitant]
     Active Substance: ACETAMINOPHEN
     Indication: Pain
     Dosage: 1000 MG DAILY AS NEEDED
     Route: 048
  4. ASPIRIN [Concomitant]
     Active Substance: ASPIRIN
     Indication: Plateletcrit
     Route: 048
     Dates: start: 20160309
  5. VITAMIN B12 [Concomitant]
     Active Substance: CYANOCOBALAMIN
     Indication: Product used for unknown indication
     Route: 048
     Dates: start: 20210920
  6. DENTA 5000 PLUS 1.1% [Concomitant]
     Indication: Product used for unknown indication
     Dosage: 1 APPLICATION BY MOUTH AT BEDTIME
     Route: 048
  7. DICLOFENAC 1A PHARMA [Concomitant]
     Indication: Product used for unknown indication
     Dosage: APPLY TO PAINFUL AREAS TWICE DAILY WHEN NOT WEARING LIDODERM PATCH
     Dates: start: 20191018
  8. BENADRYL [Concomitant]
     Active Substance: DIPHENHYDRAMINE HYDROCHLORIDE
     Indication: Product used for unknown indication
     Dosage: NIGHTLY AS NEEDED
     Route: 048
  9. VITAMIN D2 [Concomitant]
     Active Substance: ERGOCALCIFEROL
     Indication: Product used for unknown indication
     Dosage: 1 CAPSULE (50 000 UNITS OR 1250 MCG) ONCE A WEEK, EVERY MONDAY
     Route: 048
  10. FOLVITE [Concomitant]
     Active Substance: FOLIC ACID
     Indication: Product used for unknown indication
     Route: 048
  11. HYDREA [Concomitant]
     Active Substance: HYDROXYUREA
     Indication: Product used for unknown indication
     Dosage: ALTERNATING WITH 2 CAPSULES DAILY (1000 MG)
     Route: 048
  12. TORADOL [Concomitant]
     Active Substance: KETOROLAC TROMETHAMINE
     Indication: Pain
     Dosage: 1 TABLET EVERY 6 HOURS AS NEEDED
     Route: 048
  13. LIDODERM [Concomitant]
     Active Substance: LIDOCAINE
     Indication: Pain
     Dosage: APPLY PATCH TO PAINFUL AREA. PATCH MAY REMAIN IN PLACE FOR UP TO 12 HOURS IN A 24 HOUR PERIOD AS NEE
  14. CLARITIN [Concomitant]
     Active Substance: LORATADINE
     Indication: Product used for unknown indication
     Route: 048
  15. MELATONIN [Concomitant]
     Active Substance: MELATONIN
     Indication: Product used for unknown indication
     Dosage: NIGHTLY
     Route: 048
  16. PAMELOR [Concomitant]
     Active Substance: NORTRIPTYLINE HYDROCHLORIDE
     Indication: Product used for unknown indication
     Dosage: 2 CAPSULES NIGHTLY
     Route: 048
  17. ZOFRAN-ODT [Concomitant]
     Indication: Nausea
     Dosage: 1 TABLET EVERY 8 HOURS AS NEEDED
     Route: 048
  18. OXYCONTIN [Concomitant]
     Active Substance: OXYCODONE HYDROCHLORIDE
     Indication: Product used for unknown indication
     Route: 048
  19. OXYCONTIN [Concomitant]
     Active Substance: OXYCODONE HYDROCHLORIDE
     Indication: Product used for unknown indication
     Dosage: 1 TABLET EVERY 4 HOURS AS NEEDED
  20. FLINTSTONES [Concomitant]
     Indication: Product used for unknown indication
     Dosage: UNIT DOSE NOT PROVIDED
     Route: 048
  21. SYSTANE ULTRA [Concomitant]
     Active Substance: POLYETHYLENE GLYCOL 400\PROPYLENE GLYCOL
     Indication: Dry eye
     Dosage: 1 DROP INTO BOTH EYES 2 TIMES DAILY
  22. MIRALAX [Concomitant]
     Active Substance: POLYETHYLENE GLYCOL 3350
     Indication: Constipation
     Dosage: 17 GRAM/DOSE DAILY AS NEEDED
     Route: 048
  23. SENNA PLUS [Concomitant]
     Active Substance: DOCUSATE SODIUM\SENNOSIDES\SENNOSIDES A AND B
     Indication: Product used for unknown indication
     Dosage: 8.6 - 50 MG PER TABLETS
     Route: 048
  24. ZANAFLEX [Concomitant]
     Active Substance: TIZANIDINE HYDROCHLORIDE
     Indication: Product used for unknown indication
     Dosage: 1 TABLET EVERY 8 HOURS, AS NEEDED, FOR UP TO 30 DAYS
     Route: 048

REACTIONS (5)
  - Sickle cell anaemia with crisis [Unknown]
  - Sickle cell anaemia with crisis [Recovered/Resolved]
  - Sickle cell anaemia with crisis [Recovering/Resolving]
  - Product dose omission issue [Unknown]
  - Therapy interrupted [Unknown]

NARRATIVE: CASE EVENT DATE: 20210910
